FAERS Safety Report 4529329-3 (Version None)
Quarter: 2004Q4

REPORT INFORMATION
  Report Type: 
  Country: None (occurrence: None)
  Receive Date: 20041202
  Receipt Date: 20040825
  Transmission Date: 20050328
  Serious: No
  Sender: FDA-Public Use
  Company Number: 200420369BWH

PATIENT
  Age: 53 Year
  Sex: Male
  Weight: 92.9874 kg

DRUGS (3)
  1. LEVITRA [Suspect]
     Indication: SEXUAL ACTIVITY INCREASED
     Dosage: 20 MG, PRN, ORAL
     Route: 048
  2. LEVITRA [Suspect]
     Dosage: 30 MG, TOTAL DAILY, ORAL
     Route: 048
     Dates: start: 20040826
  3. M.V.I. [Concomitant]

REACTIONS (4)
  - DRUG INEFFECTIVE [None]
  - HEADACHE [None]
  - SWELLING FACE [None]
  - UNEVALUABLE EVENT [None]
